FAERS Safety Report 16953161 (Version 1)
Quarter: 2019Q4

REPORT INFORMATION
  Report Type: Spontaneous
  Country: US (occurrence: US)
  Receive Date: 20191023
  Receipt Date: 20191023
  Transmission Date: 20200122
  Serious: Yes (Death, Other)
  Sender: FDA-Public Use
  Company Number: US-SYNEX-T201907030

PATIENT
  Age: 40 Year
  Sex: Male

DRUGS (1)
  1. INOMAX [Suspect]
     Active Substance: NITRIC OXIDE
     Indication: PULMONARY EMBOLISM
     Dosage: 40 PPM
     Route: 065
     Dates: start: 20191012, end: 20191013

REACTIONS (5)
  - Wrong device used [Unknown]
  - Product use issue [Unknown]
  - Aortic dissection [Unknown]
  - Product use in unapproved indication [Unknown]
  - Death [Fatal]

NARRATIVE: CASE EVENT DATE: 201910
